FAERS Safety Report 16134296 (Version 1)
Quarter: 2019Q1

REPORT INFORMATION
  Report Type: Spontaneous
  Country: US (occurrence: US)
  Receive Date: 20190331
  Receipt Date: 20190331
  Transmission Date: 20190418
  Serious: No
  Sender: FDA-Public Use
  Company Number: US-JNJFOC-20190315974

PATIENT
  Sex: Female
  Weight: 92.08 kg

DRUGS (6)
  1. GABAPENTIN. [Concomitant]
     Active Substance: GABAPENTIN
     Indication: FIBROMYALGIA
     Route: 048
     Dates: start: 201901
  2. TOPIRAMATE. [Suspect]
     Active Substance: TOPIRAMATE
     Indication: FIBROMYALGIA
     Route: 048
  3. LYRICA [Concomitant]
     Active Substance: PREGABALIN
     Indication: DIABETIC NEUROPATHY
     Route: 065
     Dates: start: 201901, end: 201901
  4. TOPIRAMATE. [Suspect]
     Active Substance: TOPIRAMATE
     Indication: DIABETIC NEUROPATHY
     Route: 048
  5. GABAPENTIN. [Concomitant]
     Active Substance: GABAPENTIN
     Indication: DIABETIC NEUROPATHY
     Route: 048
     Dates: start: 201901
  6. LYRICA [Concomitant]
     Active Substance: PREGABALIN
     Indication: FIBROMYALGIA
     Route: 065
     Dates: start: 201901, end: 201901

REACTIONS (3)
  - Product use in unapproved indication [Unknown]
  - Pain [Unknown]
  - Off label use [Unknown]
